FAERS Safety Report 6283982-5 (Version None)
Quarter: 2009Q3

REPORT INFORMATION
  Report Type: 
  Country: None (occurrence: None)
  Receive Date: 20090722
  Receipt Date: 20090709
  Transmission Date: 20100115
  Serious: Yes (Other)
  Sender: FDA-Public Use
  Company Number: 8048946

PATIENT
  Age: 44 Year
  Sex: Female

DRUGS (7)
  1. PREDNISOLONE [Suspect]
     Indication: MUSCLE NECROSIS
     Dosage: PO
     Route: 048
  2. PREDNISOLONE [Suspect]
     Indication: MUSCLE NECROSIS
     Dosage: 40 MG 1/D PO
     Route: 048
  3. AZATHIOPRINE [Suspect]
     Indication: MUSCLE NECROSIS
  4. CYCLOPHOSPHAMIDE [Suspect]
     Dosage: 750 MG TWICE IV
     Route: 042
  5. METHOTREXATE [Suspect]
  6. METHYLPREDNISOLONE [Suspect]
     Dosage: 125 MG TWICE
  7. RITUXIMAB [Suspect]
     Dosage: 1 G TWICE

REACTIONS (6)
  - ANTIBODY TEST POSITIVE [None]
  - BLOOD CREATINE PHOSPHOKINASE INCREASED [None]
  - DRUG EFFECT DECREASED [None]
  - HERPES ZOSTER [None]
  - MUSCULAR WEAKNESS [None]
  - WEIGHT BEARING DIFFICULTY [None]
